FAERS Safety Report 5729927-5 (Version None)
Quarter: 2008Q2

REPORT INFORMATION
  Report Type: 
  Country: None (occurrence: None)
  Receive Date: 20080502
  Receipt Date: 20080419
  Transmission Date: 20081010
  Serious: Yes (Hospitalization)
  Sender: FDA-Public Use
  Company Number: SPI200800202

PATIENT

DRUGS (1)
  1. AMITIZA [Suspect]
     Dosage: 24 MCG

REACTIONS (1)
  - RENAL FAILURE [None]
